FAERS Safety Report 24266068 (Version 1)
Quarter: 2024Q3

REPORT INFORMATION
  Report Type: Spontaneous
  Country: US (occurrence: None)
  Receive Date: 20240830
  Receipt Date: 20240830
  Transmission Date: 20241016
  Serious: No
  Sender: AXSOME THERAPEUTICS
  Company Number: US-Axsome Therapeutics, Inc.-AXS202405-000682

PATIENT

DRUGS (2)
  1. AUVELITY [Suspect]
     Active Substance: BUPROPION HYDROCHLORIDE\DEXTROMETHORPHAN HYDROBROMIDE
     Indication: Product used for unknown indication
     Route: 065
     Dates: start: 20240516
  2. ZOLOFT [Suspect]
     Active Substance: SERTRALINE HYDROCHLORIDE
     Indication: Product used for unknown indication
     Dosage: UNK
     Route: 065

REACTIONS (12)
  - Feeling drunk [Unknown]
  - Balance disorder [Unknown]
  - Impaired driving ability [Unknown]
  - Throat tightness [Unknown]
  - Pharyngeal swelling [Unknown]
  - Nasopharyngitis [Unknown]
  - Upper respiratory tract congestion [Unknown]
  - Dyspnoea [Unknown]
  - Euphoric mood [Unknown]
  - Disturbance in attention [Unknown]
  - Confusional state [Unknown]
  - Dizziness [Unknown]

NARRATIVE: CASE EVENT DATE: 20240501
